FAERS Safety Report 9914697 (Version 2)
Quarter: 2014Q1

REPORT INFORMATION
  Report Type: Report from Study
  Country: US (occurrence: US)
  Receive Date: 20140220
  Receipt Date: 20140220
  Transmission Date: 20141002
  Serious: Yes (Hospitalization, Other)
  Sender: FDA-Public Use
  Company Number: US-ABBVIE-13P-163-1060265-00

PATIENT
  Age: 64 Year
  Sex: Female

DRUGS (21)
  1. HUMIRA [Suspect]
     Indication: CROHN^S DISEASE
     Dates: start: 20121231, end: 20121231
  2. HUMIRA [Suspect]
     Dates: start: 20130114, end: 20130114
  3. HUMIRA [Suspect]
     Dates: start: 20130211, end: 20130211
  4. REMICADE [Suspect]
     Indication: CROHN^S DISEASE
  5. ATENOLOL [Concomitant]
     Indication: MITRAL VALVE PROLAPSE
  6. DEXILANT [Concomitant]
     Indication: GASTROOESOPHAGEAL REFLUX DISEASE
     Dosage: 60 MG DAILY
  7. DIPHENOXYLATE-ATROPINE [Concomitant]
     Indication: DIARRHOEA
     Dosage: 1 TABLET AS NEEDED
  8. ESTRADIOL [Concomitant]
     Indication: HORMONE REPLACEMENT THERAPY
     Dosage: 1 MG DAILY
  9. FOLIC ACID [Concomitant]
     Indication: PRODUCT USED FOR UNKNOWN INDICATION
     Dosage: 2 MG DAILY
     Dates: end: 20140107
  10. GEMFIBROZIL [Concomitant]
     Indication: BLOOD CHOLESTEROL INCREASED
  11. MICROZIDE [Concomitant]
     Indication: HYPERTENSION
     Dates: end: 201401
  12. HYOSCYAMINE SULFATE [Concomitant]
     Indication: CROHN^S DISEASE
  13. LISINOPRIL [Concomitant]
     Indication: PRODUCT USED FOR UNKNOWN INDICATION
     Dosage: 20 MG DAILY
     Dates: end: 20140107
  14. PHENERGAN [Concomitant]
     Indication: NAUSEA
     Dosage: AS NEEDED
  15. CARAFATE [Concomitant]
     Indication: ULCER
  16. ASA [Concomitant]
     Indication: PRODUCT USED FOR UNKNOWN INDICATION
     Dosage: 81 MG DAILY
  17. METHOTREXATE [Concomitant]
     Indication: PRODUCT USED FOR UNKNOWN INDICATION
     Dosage: 8 TABS EVERY FRIDAY
  18. OMEPRAZOLE [Concomitant]
     Indication: PRODUCT USED FOR UNKNOWN INDICATION
     Dates: start: 20140107
  19. LOSARTAN [Concomitant]
     Indication: PRODUCT USED FOR UNKNOWN INDICATION
  20. METHOTREXATE [Concomitant]
     Indication: PRODUCT USED FOR UNKNOWN INDICATION
     Dates: end: 20140207
  21. BUDESONIDE [Concomitant]
     Indication: CROHN^S DISEASE
     Dosage: 3TABS/4WKS,2TABS/2WKS,1TAB/2WEEKS

REACTIONS (29)
  - Sensation of heaviness [Recovered/Resolved]
  - Memory impairment [Recovered/Resolved]
  - Feeling abnormal [Recovered/Resolved]
  - Dry mouth [Recovered/Resolved]
  - Choking sensation [Recovered/Resolved]
  - Anaphylactic reaction [Unknown]
  - Confusional state [Recovered/Resolved]
  - Dyspnoea [Recovered/Resolved]
  - Abdominal pain [Recovered/Resolved]
  - Diarrhoea [Recovered/Resolved]
  - Pleural effusion [Recovered/Resolved]
  - Chest discomfort [Unknown]
  - Dyspnoea [Unknown]
  - Histoplasmosis [Unknown]
  - Injection site pain [Unknown]
  - Injection site erythema [Unknown]
  - Fatigue [Unknown]
  - Injection site erythema [Unknown]
  - Injection site swelling [Unknown]
  - Fatigue [Unknown]
  - Injection site erythema [Unknown]
  - Fatigue [Unknown]
  - Feeling abnormal [Unknown]
  - Dizziness [Unknown]
  - Drug hypersensitivity [Not Recovered/Not Resolved]
  - Local swelling [Unknown]
  - Joint swelling [Unknown]
  - Pain in extremity [Unknown]
  - Hand deformity [Unknown]
